FAERS Safety Report 9319732 (Version 1)
Quarter: 2013Q2

REPORT INFORMATION
  Report Type: Spontaneous
  Country: US (occurrence: None)
  Receive Date: 20130529
  Receipt Date: 20130529
  Transmission Date: 20140414
  Serious: Yes (Life-Threatening, Hospitalization)
  Sender: FDA-Public Use
  Company Number: None

PATIENT
  Age: 28 Year
  Sex: Female
  Weight: 43.5 kg

DRUGS (1)
  1. AMIODARONE [Suspect]
     Route: 042

REACTIONS (2)
  - Oxygen saturation decreased [None]
  - Hypotension [None]
